FAERS Safety Report 17332706 (Version 4)
Quarter: 2020Q2

REPORT INFORMATION
  Report Type: Report from Study
  Country: None (occurrence: US)
  Receive Date: 20200128
  Receipt Date: 20200514
  Transmission Date: 20200713
  Serious: Yes (Hospitalization, Other)
  Sender: FDA-Public Use
  Company Number: US-ABBVIE-20K-163-3247917-00

PATIENT
  Age: 60 Year
  Sex: Male
  Weight: 145.28 kg

DRUGS (4)
  1. LUPRON [Suspect]
     Active Substance: LEUPROLIDE ACETATE
     Route: 030
  2. PLANT STEROLS PLUS [Concomitant]
     Indication: PRODUCT USED FOR UNKNOWN INDICATION
  3. LUPRON [Suspect]
     Active Substance: LEUPROLIDE ACETATE
     Indication: PROSTATE CANCER
     Route: 030
  4. ELIGARD [Concomitant]
     Active Substance: LEUPROLIDE ACETATE
     Indication: PRODUCT USED FOR UNKNOWN INDICATION

REACTIONS (20)
  - Bladder discomfort [Unknown]
  - Dysstasia [Unknown]
  - Mood altered [Unknown]
  - Therapeutic response shortened [Not Recovered/Not Resolved]
  - Pulmonary embolism [Unknown]
  - Myocardial infarction [Unknown]
  - Back pain [Unknown]
  - Metastatic neoplasm [Unknown]
  - Limb injury [Unknown]
  - Neoplasm malignant [Unknown]
  - Infection [Recovered/Resolved]
  - Arthralgia [Unknown]
  - Blood disorder [Not Recovered/Not Resolved]
  - Infection [Unknown]
  - Hot flush [Not Recovered/Not Resolved]
  - Coronary artery occlusion [Unknown]
  - Renal failure [Unknown]
  - Abnormal dreams [Not Recovered/Not Resolved]
  - Intentional product misuse [Unknown]
  - Blood testosterone decreased [Unknown]

NARRATIVE: CASE EVENT DATE: 2019
